FAERS Safety Report 6109035-4 (Version None)
Quarter: 2009Q1

REPORT INFORMATION
  Report Type: 
  Country: None (occurrence: None)
  Receive Date: 20090310
  Receipt Date: 20090225
  Transmission Date: 20090719
  Serious: Yes (Other)
  Sender: FDA-Public Use
  Company Number: US-ROCHE-617029

PATIENT
  Age: 62 Year
  Sex: Female

DRUGS (6)
  1. XELODA [Suspect]
     Indication: COLORECTAL CANCER
     Dosage: DOSE: 1500 MG IN AM AND 1500 MG IN PM; TWO WEEK CYCLE
     Route: 065
     Dates: start: 20080801
  2. XELODA [Suspect]
     Dosage: DOSE REDUCED; 1000 MG IN AM AND 1000  MG IN PM; ONE WEEK CYCLE
     Route: 065
     Dates: start: 20090101
  3. ERBITUX [Suspect]
     Indication: DRUG USE FOR UNKNOWN INDICATION
     Route: 065
     Dates: start: 20080801
  4. LISINOPRIL [Concomitant]
  5. ASPIRIN [Concomitant]
     Dosage: LOW DOSE
  6. CITRACAL [Concomitant]
     Dosage: DRUG REPORTED AS CITROCAL

REACTIONS (4)
  - CATHETER THROMBOSIS [None]
  - COUGH [None]
  - FATIGUE [None]
  - NAUSEA [None]
